FAERS Safety Report 6826812-2 (Version None)
Quarter: 2010Q3

REPORT INFORMATION
  Report Type: 
  Country: None (occurrence: None)
  Receive Date: 20100709
  Receipt Date: 20100629
  Transmission Date: 20110219
  Serious: Yes (Other)
  Sender: FDA-Public Use
  Company Number: US-ROCHE-691821

PATIENT
  Sex: Male
  Weight: 81.6 kg

DRUGS (5)
  1. ACCUTANE [Suspect]
     Indication: ACNE
     Route: 065
     Dates: start: 19990201
  2. ACCUTANE [Suspect]
     Route: 065
     Dates: end: 19990701
  3. ACCUTANE [Suspect]
     Route: 065
     Dates: start: 20000930, end: 20010301
  4. AMNESTEEM [Suspect]
     Indication: ACNE
     Route: 065
     Dates: start: 20050506, end: 20051001
  5. BENADRYL [Concomitant]

REACTIONS (7)
  - ANAL FISSURE [None]
  - CROHN'S DISEASE [None]
  - FOOT FRACTURE [None]
  - HEADACHE [None]
  - ILEAL STENOSIS [None]
  - INFLAMMATORY BOWEL DISEASE [None]
  - LIP DRY [None]
